FAERS Safety Report 4287073-4 (Version None)
Quarter: 2004Q1

REPORT INFORMATION
  Report Type: 
  Country: None (occurrence: None)
  Receive Date: 20040121
  Receipt Date: 20030611
  Transmission Date: 20041129
  Serious: Yes (Other)
  Sender: FDA-Public Use
  Company Number: A03200301274

PATIENT
  Age: 60 Year
  Sex: Female

DRUGS (3)
  1. PLAVIX [Suspect]
     Indication: MYOCARDIAL INFARCTION
     Dosage: 75 MG QD - ORAL
     Route: 048
     Dates: start: 20030520, end: 20030606
  2. ATENOLOL [Concomitant]
  3. ACETYLSALICYLIC ACID [Concomitant]

REACTIONS (5)
  - DYSPNOEA [None]
  - HOARSENESS [None]
  - OROPHARYNGEAL SWELLING [None]
  - SWELLING FACE [None]
  - URTICARIA [None]
